FAERS Safety Report 4688231-7 (Version None)
Quarter: 2005Q2

REPORT INFORMATION
  Report Type: 
  Country: None (occurrence: None)
  Receive Date: 20050609
  Receipt Date: 20050603
  Transmission Date: 20051028
  Serious: Yes (Hospitalization, Other)
  Sender: FDA-Public Use
  Company Number: KII-2005-0016867

PATIENT
  Age: 46 Year
  Sex: Female

DRUGS (7)
  1. MORPHINE SULFATE [Suspect]
     Dosage: SEE TEXT
  2. CARISOPRODOL [Suspect]
     Dosage: SEE TEXT
  3. GABAPENTIN [Suspect]
     Dosage: 800 MG, SEE TEXT
  4. OTHER ANALGESICS AND ANTIPYRETICS [Suspect]
     Dosage: SEE TEXT
  5. HEROIN (DIAMORPHINE) [Suspect]
     Dosage: SEE TEXT
  6. BARBITURATES [Suspect]
  7. COCAINE (COCAINE) [Suspect]

REACTIONS (9)
  - AGITATION [None]
  - BELLIGERENCE [None]
  - COMA [None]
  - DRUG ABUSER [None]
  - HEART RATE INCREASED [None]
  - HYPERTENSION [None]
  - INTENTIONAL MISUSE [None]
  - RESPIRATORY RATE INCREASED [None]
  - WHITE BLOOD CELL COUNT INCREASED [None]
